FAERS Safety Report 11521460 (Version 1)
Quarter: 2015Q3

REPORT INFORMATION
  Report Type: Spontaneous
  Country: JP (occurrence: JP)
  Receive Date: 20150918
  Receipt Date: 20150918
  Transmission Date: 20151125
  Serious: Yes (Hospitalization, Other)
  Sender: FDA-Public Use
  Company Number: JP-PFIZER INC-2015290368

PATIENT
  Age: 86 Year
  Sex: Male

DRUGS (9)
  1. NEXIUM [Concomitant]
     Active Substance: ESOMEPRAZOLE MAGNESIUM
     Dosage: 20 MG, DAILY
     Route: 048
     Dates: end: 20150826
  2. BIO-THREE [Concomitant]
     Active Substance: HERBALS
     Dosage: 9 G, DAILY
     Route: 048
     Dates: end: 20150826
  3. LYRICA [Suspect]
     Active Substance: PREGABALIN
     Indication: BACK PAIN
     Dosage: 25 MG, 2X/DAY
     Route: 048
     Dates: start: 20150706
  4. LYRICA [Suspect]
     Active Substance: PREGABALIN
     Dosage: 150 MG, 2X/DAY
     Route: 048
     Dates: start: 20150818, end: 20150826
  5. HALCION [Concomitant]
     Active Substance: TRIAZOLAM
     Indication: INSOMNIA
     Dosage: 0.25 MG, DAILY
     Route: 048
     Dates: end: 20150826
  6. GRIMAC [Concomitant]
     Dosage: 6 MG, DAILY
     Route: 048
     Dates: end: 20150826
  7. ERISPAN /00008502/ [Concomitant]
     Dosage: 1 MG, DAILY
     Route: 048
     Dates: end: 20150826
  8. URSO [Concomitant]
     Active Substance: URSODIOL
     Dosage: 150 MG, DAILY
     Route: 048
     Dates: end: 20150826
  9. PLATYCODON GRANDIFLORUS [Concomitant]
     Dosage: 5 MG, DAILY
     Route: 048
     Dates: end: 20150826

REACTIONS (5)
  - Oedema [Recovered/Resolved]
  - Somnolence [Recovered/Resolved]
  - Asthenia [Recovered/Resolved]
  - Blood creatine phosphokinase increased [Recovered/Resolved]
  - Circulatory collapse [Recovered/Resolved]

NARRATIVE: CASE EVENT DATE: 20150826
